FAERS Safety Report 10533763 (Version 1)
Quarter: 2014Q4

REPORT INFORMATION
  Report Type: Spontaneous
  Country: US (occurrence: None)
  Receive Date: 20141021
  Receipt Date: 20141021
  Transmission Date: 20150529
  Serious: No
  Sender: FDA-Public Use
  Company Number: None

PATIENT
  Age: 64 Year
  Sex: Female
  Weight: 71.67 kg

DRUGS (5)
  1. GABAPENTIN (NEURONTIN) [Concomitant]
  2. LIDOCAINE (LIDODERM) [Concomitant]
  3. REVLIMID [Suspect]
     Active Substance: LENALIDOMIDE
     Indication: PLASMA CELL MYELOMA
     Dosage: 25 MG X21D/28D ORALLY
     Route: 048
     Dates: start: 201404
  4. DEXAMETHASONE (DECADRON) [Concomitant]
  5. TOP PTMD PATCH [Concomitant]

REACTIONS (3)
  - Temperature intolerance [None]
  - Hot flush [None]
  - Diarrhoea [None]
